FAERS Safety Report 12115347 (Version 5)
Quarter: 2020Q1

REPORT INFORMATION
  Report Type: Report from Study
  Country: None (occurrence: US)
  Receive Date: 20160225
  Receipt Date: 20200323
  Transmission Date: 20200409
  Serious: Yes (Hospitalization, Other)
  Sender: FDA-Public Use
  Company Number: US-ABBVIE-16K-163-1567068-00

PATIENT
  Age: 71 Year
  Sex: Male
  Weight: 102.15 kg

DRUGS (6)
  1. HUMIRA [Suspect]
     Active Substance: ADALIMUMAB
     Dosage: MISSED DOSE IN THE PAST DUE TO BEING OUT OF TOWN.
     Route: 058
  2. HUMIRA [Suspect]
     Active Substance: ADALIMUMAB
     Dosage: CITRATE FREE
     Route: 058
     Dates: start: 201509
  3. HUMIRA [Suspect]
     Active Substance: ADALIMUMAB
     Indication: CROHN^S DISEASE
     Dosage: CITRATE FREE
     Route: 058
     Dates: start: 2013, end: 201501
  4. LIALDA [Concomitant]
     Active Substance: MESALAMINE
     Indication: CROHN^S DISEASE
  5. HUMIRA [Suspect]
     Active Substance: ADALIMUMAB
     Dosage: CITRATE FREE
     Route: 058
     Dates: start: 201503, end: 201508
  6. REPATHA [Concomitant]
     Active Substance: EVOLOCUMAB
     Indication: CARDIAC DISORDER

REACTIONS (13)
  - Upper limb fracture [Recovered/Resolved]
  - Anal fistula [Recovered/Resolved]
  - Upper limb fracture [Unknown]
  - Device loosening [Recovered/Resolved]
  - Knee arthroplasty [Unknown]
  - Fall [Recovered/Resolved]
  - Wrist fracture [Recovered/Resolved]
  - Arthralgia [Recovered/Resolved]
  - Meniscus injury [Unknown]
  - Knee arthroplasty [Recovering/Resolving]
  - Intentional product misuse [Recovered/Resolved]
  - Osteoarthritis [Recovered/Resolved]
  - Fall [Unknown]

NARRATIVE: CASE EVENT DATE: 2013
